FAERS Safety Report 6123097-X (Version None)
Quarter: 2009Q1

REPORT INFORMATION
  Report Type: 
  Country: None (occurrence: None)
  Receive Date: 20090318
  Receipt Date: 20090304
  Transmission Date: 20090719
  Serious: Yes (Other)
  Sender: FDA-Public Use
  Company Number: GB-BAUSCH-2009BL001015

PATIENT
  Age: 34 Year
  Sex: Male

DRUGS (4)
  1. PREDNISOLONE [Suspect]
     Indication: RENAL TRANSPLANT
  2. BASILIXIMAB [Suspect]
     Indication: RENAL TRANSPLANT
  3. TACROLIMUS [Suspect]
     Indication: RENAL TRANSPLANT
  4. MYCOPHENOLATE MOFETIL [Suspect]
     Indication: RENAL TRANSPLANT

REACTIONS (2)
  - BLOOD ALKALINE PHOSPHATASE INCREASED [None]
  - PERITONITIS [None]
